FAERS Safety Report 4505471-8 (Version None)
Quarter: 2004Q4

REPORT INFORMATION
  Report Type: 
  Country: None (occurrence: None)
  Receive Date: 20041118
  Receipt Date: 20041108
  Transmission Date: 20050328
  Serious: Yes (Other)
  Sender: FDA-Public Use
  Company Number: 2004090003

PATIENT
  Sex: Female

DRUGS (1)
  1. BENGAY (MENTHOL) [Suspect]
     Dosage: TOPICAL
     Route: 061

REACTIONS (10)
  - ABDOMINAL INJURY [None]
  - ARTHRALGIA [None]
  - BACK INJURY [None]
  - BACK PAIN [None]
  - HEAD INJURY [None]
  - LIMB INJURY [None]
  - NECK INJURY [None]
  - NECK PAIN [None]
  - PAIN IN EXTREMITY [None]
  - ROAD TRAFFIC ACCIDENT [None]
